FAERS Safety Report 6604605-9 (Version None)
Quarter: 2010Q1

REPORT INFORMATION
  Report Type: 
  Country: None (occurrence: None)
  Receive Date: 20100226
  Receipt Date: 20091216
  Transmission Date: 20100710
  Serious: No
  Sender: FDA-Public Use
  Company Number: A0835961A

PATIENT
  Age: 60 Year
  Sex: Female

DRUGS (2)
  1. LAMICTAL CD [Suspect]
     Dosage: 200MGD PER DAY
     Route: 048
     Dates: start: 20091001
  2. AMBIEN [Concomitant]

REACTIONS (1)
  - HOT FLUSH [None]
